FAERS Safety Report 7675378-6 (Version None)
Quarter: 2011Q3

REPORT INFORMATION
  Report Type: 
  Country: None (occurrence: None)
  Receive Date: 20110810
  Receipt Date: 20110728
  Transmission Date: 20111222
  Serious: Yes (Hospitalization)
  Sender: FDA-Public Use
  Company Number: IL-GLAXOSMITHKLINE-Z0009985B

PATIENT
  Sex: Male
  Weight: 76.3 kg

DRUGS (1)
  1. OFATUMUMAB [Suspect]
     Indication: CHRONIC LYMPHOCYTIC LEUKAEMIA REFRACTORY
     Route: 042
     Dates: start: 20110530

REACTIONS (1)
  - FEBRILE NEUTROPENIA [None]
